FAERS Safety Report 5038826-6 (Version None)
Quarter: 2006Q2

REPORT INFORMATION
  Report Type: 
  Country: None (occurrence: None)
  Receive Date: 20060627
  Receipt Date: 20060627
  Transmission Date: 20061013
  Serious: Yes (Death, Hospitalization)
  Sender: FDA-Public Use
  Company Number: None

PATIENT
  Age: 60 Year
  Sex: Male
  Weight: 58.0604 kg

DRUGS (11)
  1. COUMADIN [Suspect]
     Indication: PULMONARY EMBOLISM
     Dosage: 2.5 MG DAILY
  2. NPH INSULIN [Concomitant]
  3. SIMVASTATIN [Concomitant]
  4. ASPIRIN [Concomitant]
  5. DIGOXIN [Concomitant]
  6. ERGOCALCIFEROL [Concomitant]
  7. DARBEPOETIN [Concomitant]
  8. METOPROLOL TARTRATE [Concomitant]
  9. NEPHROCAP [Concomitant]
  10. M.V.I. [Concomitant]
  11. FERROUS GLUCONATE [Concomitant]

REACTIONS (3)
  - CEREBRAL HAEMORRHAGE [None]
  - MENTAL STATUS CHANGES [None]
  - NAUSEA [None]
